FAERS Safety Report 5671990-4 (Version None)
Quarter: 2008Q1

REPORT INFORMATION
  Report Type: 
  Country: None (occurrence: None)
  Receive Date: 20080318
  Receipt Date: 20080318
  Transmission Date: 20080703
  Serious: Yes (Hospitalization, Other)
  Sender: FDA-Public Use
  Company Number: None

PATIENT
  Sex: Female

DRUGS (15)
  1. ORENCIA [Suspect]
     Indication: RHEUMATOID ARTHRITIS
     Dosage: 500 MGM IV OVER 30 MIN.
     Route: 042
     Dates: start: 20080305
  2. PEPCID AC [Concomitant]
  3. REMICADE [Concomitant]
  4. SODIUM CHLORIDE [Concomitant]
  5. TYLENOL (CAPLET) [Concomitant]
  6. VANCOMYCIN HCL [Concomitant]
  7. BENADRYL [Concomitant]
  8. CALCIUM + D [Concomitant]
  9. DARVOCET-N [Concomitant]
  10. DITROPAN [Concomitant]
  11. FOLIC ACID [Concomitant]
  12. HEPARIN LOCK-FLUSH [Concomitant]
  13. IBUPROFEN [Concomitant]
  14. METHOTREXATE SODIUM [Concomitant]
  15. MULTIVITAMIN [Concomitant]

REACTIONS (3)
  - DYSPNOEA [None]
  - PRURITUS [None]
  - URTICARIA [None]
